FAERS Safety Report 8351982-7 (Version None)
Quarter: 2012Q2

REPORT INFORMATION
  Report Type: 
  Country: None (occurrence: None)
  Receive Date: 20120511
  Receipt Date: 20120503
  Transmission Date: 20120825
  Serious: Yes (Hospitalization)
  Sender: FDA-Public Use
  Company Number: US-BAYER-2012-006359

PATIENT
  Age: 41 Year
  Sex: Female
  Weight: 132 kg

DRUGS (12)
  1. LEVOXYL [Concomitant]
     Dosage: 0.175 MG, QD
  2. YASMIN [Suspect]
     Indication: PREMENSTRUAL SYNDROME
     Dosage: UNK
     Dates: start: 20060101, end: 20071101
  3. YASMIN [Suspect]
  4. PROZAC [Concomitant]
     Dosage: 40 MG, QD
  5. YAZ [Suspect]
  6. OMEPRAZOLE [Concomitant]
  7. LEVIMIR [Concomitant]
     Dosage: 30 U, QD
     Route: 058
  8. YAZ [Suspect]
     Indication: PREMENSTRUAL SYNDROME
     Dosage: UNK
     Dates: start: 20060101, end: 20071101
  9. NOVOLOG [Concomitant]
  10. PREVACID [Concomitant]
     Dosage: 30 MG, QD
  11. LORTAB [Concomitant]
  12. LOVASTATIN [Concomitant]
     Dosage: 10 MG, QD

REACTIONS (3)
  - DYSPNOEA [None]
  - PULMONARY EMBOLISM [None]
  - EMOTIONAL DISTRESS [None]
